FAERS Safety Report 13360649 (Version 4)
Quarter: 2017Q4

REPORT INFORMATION
  Report Type: Report from Study
  Country: US (occurrence: US)
  Receive Date: 20170322
  Receipt Date: 20171201
  Transmission Date: 20180320
  Serious: Yes (Hospitalization)
  Sender: FDA-Public Use
  Company Number: US-ACTELION-A-US2017-151298

PATIENT
  Age: 51 Year
  Sex: Male
  Weight: 77.98 kg

DRUGS (12)
  1. CARDIZEM [Concomitant]
     Active Substance: DILTIAZEM HYDROCHLORIDE
     Dosage: 180 MG, QD
     Route: 048
  2. COUMADIN [Concomitant]
     Active Substance: WARFARIN SODIUM
     Dosage: HALF 1M G TABLET WITH A 2 MG TABLET + 5 MG TABLET ON SUN, MON,WED AND FRI
     Route: 048
  3. DIGOXIN. [Concomitant]
     Active Substance: DIGOXIN
     Dosage: 250 MCG, QD
     Route: 048
  4. LOPERAMIDE [Concomitant]
     Active Substance: LOPERAMIDE
     Dosage: 2 MG, QD
  5. RANITIDINE. [Concomitant]
     Active Substance: RANITIDINE
     Dosage: 75 MG, TID
     Route: 048
  6. VELETRI [Suspect]
     Active Substance: EPOPROSTENOL
     Indication: PULMONARY ARTERIAL HYPERTENSION
     Dosage: 50 NG/KG, PER MIN
     Route: 042
     Dates: start: 20110708
  7. LASIX [Concomitant]
     Active Substance: FUROSEMIDE
     Dosage: 40 MG, 1 TO 2 TABLETS QD
  8. METOPROLOL. [Concomitant]
     Active Substance: METOPROLOL
     Dosage: 50 MG, UNK
  9. TRACLEER [Suspect]
     Active Substance: BOSENTAN
     Indication: PULMONARY ARTERIAL HYPERTENSION
     Dosage: 125 MG, BID
     Route: 048
     Dates: start: 200308
  10. MULTIVITAMIN [Concomitant]
     Active Substance: VITAMINS
     Route: 048
  11. POTASSIUM CHLORIDE. [Concomitant]
     Active Substance: POTASSIUM CHLORIDE
     Dosage: 20 MEQ, 2 TABLETS, TID
     Route: 048
  12. VIAGRA [Concomitant]
     Active Substance: SILDENAFIL CITRATE
     Dosage: 100 MG, TID

REACTIONS (10)
  - Catheter site infection [Recovered/Resolved]
  - Thrombosis in device [Recovered/Resolved]
  - Dyspnoea exertional [Unknown]
  - Catheter site pruritus [Recovered/Resolved]
  - Catheter site erythema [Recovered/Resolved]
  - Pain in jaw [Unknown]
  - Diarrhoea [Unknown]
  - Flushing [Unknown]
  - Device dislocation [Unknown]
  - International normalised ratio fluctuation [Unknown]
